FAERS Safety Report 7230865-X (Version None)
Quarter: 2011Q1

REPORT INFORMATION
  Report Type: 
  Country: None (occurrence: None)
  Receive Date: 20110118
  Receipt Date: 20110107
  Transmission Date: 20110831
  Serious: Yes (Hospitalization)
  Sender: FDA-Public Use
  Company Number: JP-ROCHE-691990

PATIENT
  Sex: Female
  Weight: 43.9 kg

DRUGS (17)
  1. TOCILIZUMAB [Suspect]
     Route: 041
     Dates: start: 20090820, end: 20090820
  2. TOCILIZUMAB [Suspect]
     Route: 041
     Dates: start: 20100107, end: 20100107
  3. TOCILIZUMAB [Suspect]
     Route: 041
     Dates: start: 20090521, end: 20090521
  4. TOCILIZUMAB [Suspect]
     Route: 041
     Dates: start: 20090917, end: 20090917
  5. FOLIAMIN [Concomitant]
     Dosage: DOSE FORM: PERORAL AGENT
     Route: 048
  6. TOCILIZUMAB [Suspect]
     Route: 041
     Dates: start: 20090723, end: 20090723
  7. STOGAR [Concomitant]
     Route: 048
  8. TOCILIZUMAB [Suspect]
     Route: 041
     Dates: start: 20091210, end: 20091210
  9. MUCOSTA [Concomitant]
     Dosage: DOSE FORM: PERORAL AGENT
     Route: 048
  10. TOCILIZUMAB [Suspect]
     Indication: RHEUMATOID ARTHRITIS
     Route: 041
     Dates: start: 20090423, end: 20090423
  11. TOCILIZUMAB [Suspect]
     Route: 041
     Dates: start: 20090625, end: 20090625
  12. TOCILIZUMAB [Suspect]
     Route: 041
     Dates: start: 20091015, end: 20091015
  13. TOCILIZUMAB [Suspect]
     Dosage: ACTION TAKEN: UNKNOWN
     Route: 041
     Dates: start: 20091112, end: 20091112
  14. TOCILIZUMAB [Suspect]
     Route: 041
     Dates: start: 20100204, end: 20100204
  15. RHEUMATREX [Suspect]
     Indication: RHEUMATOID ARTHRITIS
     Route: 048
     Dates: start: 20070802
  16. PREDNISOLONE [Suspect]
     Indication: RHEUMATOID ARTHRITIS
     Route: 048
  17. CELCOX [Concomitant]
     Dosage: DRUG NAME REPORTED: CELECOX (CELECOXIB)
     Route: 048

REACTIONS (5)
  - ACUTE TONSILLITIS [None]
  - STOMATITIS [None]
  - COUGH [None]
  - NASOPHARYNGITIS [None]
  - SUDDEN HEARING LOSS [None]
